FAERS Safety Report 23075031 (Version 3)
Quarter: 2023Q4

REPORT INFORMATION
  Report Type: Spontaneous
  Country: US (occurrence: US)
  Receive Date: 20231017
  Receipt Date: 20231117
  Transmission Date: 20240109
  Serious: No
  Sender: FDA-Public Use
  Company Number: US-BIOGEN-2023BI01225277

PATIENT
  Age: 44 Year
  Sex: Female

DRUGS (1)
  1. TECFIDERA [Suspect]
     Active Substance: DIMETHYL FUMARATE
     Indication: Multiple sclerosis
     Dosage: FOR 5 MONTHS
     Route: 050
     Dates: end: 20231009

REACTIONS (8)
  - Inappropriate schedule of product administration [Unknown]
  - Malaise [Unknown]
  - Multiple sclerosis [Unknown]
  - Diarrhoea haemorrhagic [Recovered/Resolved]
  - Lymphocyte count decreased [Unknown]
  - Abdominal pain upper [Recovered/Resolved]
  - Flushing [Recovered/Resolved]
  - Diarrhoea [Recovered/Resolved]

NARRATIVE: CASE EVENT DATE: 20230901
